FAERS Safety Report 4718883-4 (Version None)
Quarter: 2005Q3

REPORT INFORMATION
  Report Type: 
  Country: None (occurrence: None)
  Receive Date: 20050719
  Receipt Date: 20050705
  Transmission Date: 20060218
  Serious: Yes (Hospitalization, Other)
  Sender: FDA-Public Use
  Company Number: USA0507101984

PATIENT
  Age: 57 Year
  Sex: Male

DRUGS (4)
  1. HUMALOG [Suspect]
     Indication: DIABETES MELLITUS NON-INSULIN-DEPENDENT
     Dosage: 9 U/1 IN THE EVENING
     Dates: start: 19960101
  2. HUMULIN 70/30 [Suspect]
     Indication: DIABETES MELLITUS NON-INSULIN-DEPENDENT
     Dosage: 61 U DAY
     Dates: start: 19960101
  3. HUMULIN N [Suspect]
     Indication: DIABETES MELLITUS NON-INSULIN-DEPENDENT
     Dates: start: 19850101, end: 20020101
  4. HUMULIN R [Suspect]
     Dates: start: 19580101, end: 19960101

REACTIONS (16)
  - BLOOD GLUCOSE DECREASED [None]
  - BLOOD GLUCOSE INCREASED [None]
  - CARDIAC FAILURE CONGESTIVE [None]
  - CORONARY ARTERY SURGERY [None]
  - DEVICE MALFUNCTION [None]
  - DIABETIC NEUROPATHY [None]
  - EYE HAEMORRHAGE [None]
  - HYPERHIDROSIS [None]
  - LEG AMPUTATION [None]
  - OEDEMA PERIPHERAL [None]
  - PHARMACEUTICAL PRODUCT COMPLAINT [None]
  - POOR PERIPHERAL CIRCULATION [None]
  - POSTOPERATIVE THROMBOSIS [None]
  - THROMBOSIS [None]
  - VISUAL DISTURBANCE [None]
  - WRONG TECHNIQUE IN DRUG USAGE PROCESS [None]
